FAERS Safety Report 18512816 (Version 1)
Quarter: 2020Q4

REPORT INFORMATION
  Report Type: Spontaneous
  Country: US (occurrence: US)
  Receive Date: 20201117
  Receipt Date: 20201117
  Transmission Date: 20210114
  Serious: No
  Sender: FDA-Public Use
  Company Number: US-TAKEDA-2020TUS045850

PATIENT
  Sex: Female
  Weight: 58.96 kg

DRUGS (19)
  1. HEPARIN [Concomitant]
     Active Substance: HEPARIN SODIUM
     Dosage: 10 UNK
  2. LIDOCAINE. [Concomitant]
     Active Substance: LIDOCAINE
  3. DESONIDE. [Concomitant]
     Active Substance: DESONIDE
  4. GAMMAGARD LIQUID [Suspect]
     Active Substance: HUMAN IMMUNOGLOBULIN G
     Indication: DERMATOMYOSITIS
     Dosage: 2000 MILLIGRAM/KILOGRAM, Q4WEEKS
     Route: 042
     Dates: start: 20201021
  5. DIPHENHYDRAMINE. [Concomitant]
     Active Substance: DIPHENHYDRAMINE
  6. PREDNISONE. [Concomitant]
     Active Substance: PREDNISONE
  7. KETOCONAZOLE. [Concomitant]
     Active Substance: KETOCONAZOLE
  8. ACETAMINOPHEN. [Concomitant]
     Active Substance: ACETAMINOPHEN
  9. CALCIUM/VITAMIN D3 [Concomitant]
  10. CELEBREX [Concomitant]
     Active Substance: CELECOXIB
  11. FLUOCINOLONE ACETONIDE. [Concomitant]
     Active Substance: FLUOCINOLONE ACETONIDE
  12. VITAMIN C [Concomitant]
     Active Substance: ASCORBIC ACID
  13. SODIUM CHLORIDE. [Concomitant]
     Active Substance: SODIUM CHLORIDE
  14. EPINEPHRINE. [Concomitant]
     Active Substance: EPINEPHRINE
  15. XANAX [Concomitant]
     Active Substance: ALPRAZOLAM
  16. AMBIEN [Concomitant]
     Active Substance: ZOLPIDEM TARTRATE
  17. METHOTREXATE. [Concomitant]
     Active Substance: METHOTREXATE
  18. TRIAMCINOLONE ACETONIDE. [Concomitant]
     Active Substance: TRIAMCINOLONE ACETONIDE
  19. VYVANSE [Concomitant]
     Active Substance: LISDEXAMFETAMINE DIMESYLATE

REACTIONS (7)
  - Back pain [Recovering/Resolving]
  - Pyrexia [Recovering/Resolving]
  - Chest pain [Recovering/Resolving]
  - Anxiety [Recovering/Resolving]
  - Product use in unapproved indication [Unknown]
  - Neck pain [Recovering/Resolving]
  - Infusion related reaction [Unknown]
